FAERS Safety Report 19622638 (Version 1)
Quarter: 2021Q3

REPORT INFORMATION
  Report Type: Spontaneous
  Country: US (occurrence: US)
  Receive Date: 20210728
  Receipt Date: 20210728
  Transmission Date: 20211014
  Serious: No
  Sender: FDA-Public Use
  Company Number: US-ACCORD-201991

PATIENT
  Sex: Female
  Weight: 83.91 kg

DRUGS (9)
  1. PANTOPRAZOLE [Concomitant]
     Active Substance: PANTOPRAZOLE
  2. HYDROCHLOROTHIAZIDE. [Concomitant]
     Active Substance: HYDROCHLOROTHIAZIDE
     Dosage: ONCE A WEEK
  3. ATORVASTATIN [Concomitant]
     Active Substance: ATORVASTATIN
     Dosage: ONCE A DAY
     Route: 048
  4. AMITRIPTYLINE [Suspect]
     Active Substance: AMITRIPTYLINE
     Indication: INSOMNIA
     Dosage: ONCE A DAY
     Route: 048
     Dates: start: 20200721, end: 20200811
  5. ESTRADIOL. [Concomitant]
     Active Substance: ESTRADIOL
     Dosage: ONCE DAY
  6. CYMBALTA [Concomitant]
     Active Substance: DULOXETINE HYDROCHLORIDE
     Dosage: ONCE A DAY
     Route: 048
  7. DILTIAZEM. [Concomitant]
     Active Substance: DILTIAZEM
     Indication: ATRIAL FIBRILLATION
     Dosage: ONCE A DAY
     Route: 048
  8. COZAAR [Concomitant]
     Active Substance: LOSARTAN POTASSIUM
     Indication: BLOOD PRESSURE MEASUREMENT
     Dosage: ONCE A DAY
  9. LEVOTHYROXINE. [Concomitant]
     Active Substance: LEVOTHYROXINE
     Dosage: ONCE A DAY
     Route: 048

REACTIONS (13)
  - Gingival swelling [Recovering/Resolving]
  - Dyspnoea [Recovering/Resolving]
  - Off label use [Unknown]
  - Lip swelling [Recovering/Resolving]
  - Facial spasm [Recovering/Resolving]
  - Dysuria [Recovering/Resolving]
  - Swollen tongue [Recovering/Resolving]
  - Condition aggravated [Recovering/Resolving]
  - Gingival bleeding [Recovering/Resolving]
  - Impaired work ability [Recovering/Resolving]
  - Noninfective gingivitis [Recovering/Resolving]
  - Hyperaesthesia teeth [Recovering/Resolving]
  - Dry mouth [Recovering/Resolving]
